FAERS Safety Report 4486058-2 (Version None)
Quarter: 2004Q4

REPORT INFORMATION
  Report Type: 
  Country: None (occurrence: None)
  Receive Date: 20041021
  Receipt Date: 20041008
  Transmission Date: 20050328
  Serious: Yes (Other)
  Sender: FDA-Public Use
  Company Number: 2004076588

PATIENT
  Sex: Male

DRUGS (4)
  1. CARDURA XL [Suspect]
     Indication: BLOOD PRESSURE INCREASED
     Dosage: 16 MG ( 1 D), ORAL
     Route: 048
  2. CANDESARTAN (CANDESARTAN) [Suspect]
     Indication: BLOOD PRESSURE INCREASED
     Dosage: 16 MG (1 D), ORAL
     Route: 048
  3. MODAFINIL [Concomitant]
  4. BISOPROLOL FUMARATE [Concomitant]

REACTIONS (5)
  - BLOOD PRESSURE INADEQUATELY CONTROLLED [None]
  - DEPRESSION [None]
  - DRUG INEFFECTIVE [None]
  - DRUG INTERACTION [None]
  - SLEEP APNOEA SYNDROME [None]
